FAERS Safety Report 4302816-9 (Version None)
Quarter: 2004Q1

REPORT INFORMATION
  Report Type: 
  Country: None (occurrence: None)
  Receive Date: 20040223
  Receipt Date: 20040223
  Transmission Date: 20041129
  Serious: Yes (Life-Threatening, Hospitalization)
  Sender: FDA-Public Use
  Company Number: None

PATIENT
  Sex: Male

DRUGS (8)
  1. LISINOPRIL [Suspect]
     Indication: HYPERTENSION
     Dosage: 20 MGQD ORAL
     Route: 048
     Dates: start: 20030101, end: 20030810
  2. LISINOPRIL [Concomitant]
  3. LASIX [Concomitant]
  4. PROTONIX [Concomitant]
  5. GLUCOVANCE-GLYBURIDE/METFORMIN- [Concomitant]
  6. ADVAIR DISKUS 100/50 [Concomitant]
  7. ZOLOFT [Concomitant]
  8. ATIVAN [Concomitant]

REACTIONS (1)
  - ANGIONEUROTIC OEDEMA [None]
